FAERS Safety Report 20900963 (Version 1)
Quarter: 2022Q2

REPORT INFORMATION
  Report Type: Spontaneous
  Country: TW (occurrence: TW)
  Receive Date: 20220601
  Receipt Date: 20220601
  Transmission Date: 20220721
  Serious: Yes (Other)
  Sender: FDA-Public Use
  Company Number: TW-PFIZER INC-202200768773

PATIENT
  Age: 24 Year
  Sex: Male

DRUGS (2)
  1. BENEFIX [Suspect]
     Active Substance: COAGULATION FACTOR IX RECOMBINANT HUMAN\ISOPROPYL ALCOHOL
     Indication: Factor IX deficiency
     Dosage: 3000 IU, TWICE A WEEK
     Route: 042
  2. BENEFIX [Suspect]
     Active Substance: COAGULATION FACTOR IX RECOMBINANT HUMAN\ISOPROPYL ALCOHOL
     Indication: Prophylaxis

REACTIONS (3)
  - COVID-19 pneumonia [Unknown]
  - Pyrexia [Recovering/Resolving]
  - Oropharyngeal pain [Recovering/Resolving]

NARRATIVE: CASE EVENT DATE: 20220523
